FAERS Safety Report 26152340 (Version 1)
Quarter: 2025Q4

REPORT INFORMATION
  Report Type: Spontaneous
  Country: US (occurrence: US)
  Receive Date: 20251214
  Receipt Date: 20251214
  Transmission Date: 20260118
  Serious: No
  Sender: Atnahs Healthcare
  Company Number: US-ATNAHS-ATNAHS20250201889

PATIENT
  Age: 53 Year
  Sex: Male

DRUGS (23)
  1. VALIUM [Suspect]
     Active Substance: DIAZEPAM
     Indication: Product used for unknown indication
     Dosage: UNK
  2. ACTEMRA [Suspect]
     Active Substance: TOCILIZUMAB
     Indication: Product used for unknown indication
     Dosage: 398 MILLIGRAM
     Route: 042
  3. ACTEMRA [Suspect]
     Active Substance: TOCILIZUMAB
     Dosage: 8 MILLIGRAM, 1 IN 28 DAY
     Route: 042
  4. ARIPIPRAZOLE [Concomitant]
     Active Substance: ARIPIPRAZOLE
     Indication: Product used for unknown indication
     Dosage: 5 MILLIGRAM, 1X/DAY
     Dates: start: 20240909
  5. COLCHICINE [Concomitant]
     Active Substance: COLCHICINE
     Indication: Product used for unknown indication
     Dosage: 0.6 MILLIGRAM, 1 IN 2 DAY
  6. DIAZEPAM [Concomitant]
     Active Substance: DIAZEPAM
     Indication: Anxiety
     Dosage: 2 MILLIGRAM, 1 IN 12 HOUR
     Dates: start: 20241022
  7. ERGOCALCIFEROL [Concomitant]
     Active Substance: ERGOCALCIFEROL
     Indication: Product used for unknown indication
     Dosage: 1250 MICROGRAM, (5000 UNIT)
     Dates: start: 20230917
  8. VITAMIN D2 [Concomitant]
     Active Substance: ERGOCALCIFEROL
     Indication: Product used for unknown indication
     Dosage: 1250 MICROGRAM  5000 UNIT
     Dates: start: 20230817
  9. GABAPENTIN [Concomitant]
     Active Substance: GABAPENTIN
     Indication: Product used for unknown indication
     Dosage: 300 MILLIGRAM, TAKE 1 TO 2 TABLETS BY MOUTH 3 TIMES DAILY FOR BURNING FEET AND ANXITY
  10. LORAZEPAM [Concomitant]
     Active Substance: LORAZEPAM
     Indication: Product used for unknown indication
     Dosage: 1 MILLIGRAM, 1 IN 8 HOUR, TAKE BY MOUTH EVERY 8 HOURS AS NEEDED
  11. MORPHINE [Concomitant]
     Active Substance: MORPHINE
     Indication: Neoplasm malignant
     Dosage: 60 MILLIGRAM, TAKE 1 TABLET BY MOUTH 3 TIMES A DAY
     Dates: start: 20230920
  12. MORPHINE [Concomitant]
     Active Substance: MORPHINE
     Indication: Pain
  13. NYSTATIN [Concomitant]
     Active Substance: NYSTATIN
     Indication: Product used for unknown indication
     Dosage: 100000 UNLT/GRAM 3 TIMES DAILY
     Route: 061
     Dates: start: 20241118
  14. OMEPRAZOLE [Concomitant]
     Active Substance: OMEPRAZOLE
     Indication: Product used for unknown indication
     Dosage: 20 MILLIGRAM, 2 IN 1 DAY
     Dates: start: 20230920
  15. ONDANSETRON [Concomitant]
     Active Substance: ONDANSETRON
     Indication: Product used for unknown indication
     Dosage: 8 MILLIGRAM, TAKE 8 MG BY MOUTH EVERY 8 HOURS AS NEEDED FOR NAUSEA
  16. OXYCODONE [Concomitant]
     Active Substance: OXYCODONE
     Indication: Neoplasm malignant
     Dosage: 20 MILLIGRAM, 1 IN 4 HOUR, 1 TABLET EVERY 4 HOURS BY ROUTES AS NEEDED FOR 15 DAYES
  17. OXYCODONE [Concomitant]
     Active Substance: OXYCODONE
     Indication: Pain
  18. PANTOPRAZOLE [Concomitant]
     Active Substance: PANTOPRAZOLE
     Indication: Product used for unknown indication
     Dosage: 40 MILLIGRAM, 1 IN 2 DAY
  19. PREDNISONE [Concomitant]
     Active Substance: PREDNISONE
     Indication: Product used for unknown indication
     Dosage: 10 MILLIGRAM, 1X/DAY
  20. PROCHLORPERAZINE [Concomitant]
     Active Substance: PROCHLORPERAZINE
     Indication: Product used for unknown indication
     Dosage: 5 MILLIGRAM, 1 IN 6 HOUR
  21. PROMETHAZINE [Concomitant]
     Active Substance: PROMETHAZINE HYDROCHLORIDE
     Indication: Nausea
     Dosage: 25 MILLIGRAM
     Dates: start: 20230123
  22. SERTRALINE [Concomitant]
     Active Substance: SERTRALINE HYDROCHLORIDE
     Indication: Product used for unknown indication
     Dosage: 100 MILLIGRAM, 1X/MONTH
     Dates: start: 20230606
  23. TIZANIDINE [Concomitant]
     Active Substance: TIZANIDINE
     Indication: Product used for unknown indication
     Dosage: 2 MILLIGRAM, 2 IN 1 DAY

REACTIONS (3)
  - Off label use [Unknown]
  - Adrenal insufficiency [Unknown]
  - Pericarditis [Unknown]
